FAERS Safety Report 16812207 (Version 2)
Quarter: 2019Q4

REPORT INFORMATION
  Report Type: Spontaneous
  Country: BR (occurrence: BR)
  Receive Date: 20190916
  Receipt Date: 20191226
  Transmission Date: 20200122
  Serious: Yes (Other)
  Sender: FDA-Public Use
  Company Number: BR-SA-2019SA248985

PATIENT
  Age: 41 Year
  Sex: Female

DRUGS (5)
  1. ONICIT [Concomitant]
     Active Substance: PALONOSETRON HYDROCHLORIDE
     Dosage: UNK, UNK
  2. DECADRON [Concomitant]
     Active Substance: DEXAMETHASONE
     Dosage: UNK, UNK
  3. TAXOTERE [Suspect]
     Active Substance: DOCETAXEL
     Dosage: 112.72 MG, Q3W (EVERY 21 DAYS )
     Route: 042
     Dates: start: 20190718, end: 20190718
  4. TAXOTERE [Suspect]
     Active Substance: DOCETAXEL
     Dosage: 112.725 MG, Q3W
     Dates: start: 20191010, end: 20191010
  5. EMEND [Concomitant]
     Active Substance: APREPITANT
     Dosage: UNK, UNK

REACTIONS (4)
  - Erythema [Recovered/Resolved]
  - Dyspnoea [Recovered/Resolved]
  - Oesophageal obstruction [Recovered/Resolved]
  - Hyperaemia [Unknown]

NARRATIVE: CASE EVENT DATE: 20190718
